FAERS Safety Report 6151264-8 (Version None)
Quarter: 2009Q2

REPORT INFORMATION
  Report Type: 
  Country: None (occurrence: None)
  Receive Date: 20090410
  Receipt Date: 20090407
  Transmission Date: 20091009
  Serious: Yes (Death)
  Sender: FDA-Public Use
  Company Number: VN-B.I. PHARMACEUTICALS,INC./RIDGEFIELD-2009-SG-00157SG

PATIENT
  Age: 75 Year
  Sex: Male

DRUGS (3)
  1. MOBIC TABLETS 7.5 MG [Suspect]
     Route: 065
     Dates: start: 20090310, end: 20090317
  2. CIPROFLOXACIN [Concomitant]
     Indication: RESPIRATORY TRACT INFECTION
     Route: 065
     Dates: start: 20090310, end: 20090317
  3. ANTIBIOTIC DRUGS [Concomitant]
     Route: 065
     Dates: start: 20090318

REACTIONS (4)
  - DRUG HYPERSENSITIVITY [None]
  - MULTI-ORGAN DISORDER [None]
  - RESPIRATORY TRACT INFECTION [None]
  - TOXIC EPIDERMAL NECROLYSIS [None]
